FAERS Safety Report 7872984-0 (Version None)
Quarter: 2011Q4

REPORT INFORMATION
  Report Type: 
  Country: None (occurrence: None)
  Receive Date: 20111030
  Receipt Date: 20110421
  Transmission Date: 20120403
  Serious: No
  Sender: FDA-Public Use
  Company Number: US-AMGEN-USASP2011002023

PATIENT
  Age: 68 Year
  Sex: Female

DRUGS (3)
  1. ENBREL [Suspect]
     Indication: PSORIATIC ARTHROPATHY
     Dosage: 50 MG, QWK
     Route: 058
     Dates: start: 20050601, end: 20101126
  2. ENBREL [Suspect]
  3. ENBREL [Suspect]
     Indication: PSORIASIS

REACTIONS (8)
  - ARTHRALGIA [None]
  - EYE INFECTION [None]
  - SINUSITIS [None]
  - DERMAL CYST [None]
  - PAIN IN EXTREMITY [None]
  - BACK PAIN [None]
  - WEIGHT INCREASED [None]
  - PSORIASIS [None]
